FAERS Safety Report 9472387 (Version 1)
Quarter: 2013Q3

REPORT INFORMATION
  Report Type: Spontaneous
  Country: FR (occurrence: FR)
  Receive Date: 20130823
  Receipt Date: 20130823
  Transmission Date: 20140515
  Serious: Yes (Other)
  Sender: FDA-Public Use
  Company Number: FR-UCBSA-095455

PATIENT
  Age: 65 Year
  Sex: Female

DRUGS (4)
  1. VIMPAT [Suspect]
     Indication: EPILEPSY
     Route: 048
  2. DEPAKINE [Suspect]
     Indication: EPILEPSY
     Route: 048
  3. RIVOTRIL [Suspect]
     Indication: EPILEPSY
     Route: 048
  4. LEVOTHYROX [Concomitant]

REACTIONS (2)
  - Myelodysplastic syndrome [Not Recovered/Not Resolved]
  - Infection [Recovering/Resolving]
